FAERS Safety Report 6698045-4 (Version None)
Quarter: 2010Q2

REPORT INFORMATION
  Report Type: 
  Country: None (occurrence: None)
  Receive Date: 20100426
  Receipt Date: 20100426
  Transmission Date: 20101027
  Serious: Yes (Hospitalization)
  Sender: FDA-Public Use
  Company Number: None

PATIENT
  Sex: Male

DRUGS (2)
  1. PEG-INTRON [Suspect]
     Dosage: 150MCG WEEKLY SUBCUTANEOUS
     Route: 058
  2. RIBASPHERE [Suspect]
     Dosage: 1200MG TWICE DAILY BY MOUTH
     Route: 048

REACTIONS (5)
  - ASTHENIA [None]
  - HAEMOGLOBIN DECREASED [None]
  - PLATELET COUNT DECREASED [None]
  - WEIGHT DECREASED [None]
  - WHITE BLOOD CELL COUNT DECREASED [None]
